FAERS Safety Report 9395508 (Version 1)
Quarter: 2013Q3

REPORT INFORMATION
  Report Type: Report from Study
  Country: US (occurrence: US)
  Receive Date: 20130711
  Receipt Date: 20130711
  Transmission Date: 20140515
  Serious: Yes (Other)
  Sender: FDA-Public Use
  Company Number: US-ROCHE-1243274

PATIENT
  Sex: 0

DRUGS (3)
  1. PEG-INTERFERON ALFA 2A [Suspect]
     Indication: CHRONIC HEPATITIS C
     Route: 058
  2. RIBAVIRIN [Suspect]
     Indication: CHRONIC HEPATITIS C
     Dosage: PATIENTS LESS THAN 75 KG RECEIVED 1000 MG AND THOSE GRATER THAN OR EQUAL TO 75 KG RECEIVED 1200 MG
     Route: 048
  3. SOFOSBUVIR [Suspect]
     Indication: CHRONIC HEPATITIS C
     Route: 048

REACTIONS (4)
  - Anaemia [Unknown]
  - Autoimmune hepatitis [Unknown]
  - Pyelonephritis [Unknown]
  - Pancytopenia [Unknown]
